FAERS Safety Report 20017831 (Version 1)
Quarter: 2021Q4

REPORT INFORMATION
  Report Type: Spontaneous
  Country: US (occurrence: US)
  Receive Date: 20211101
  Receipt Date: 20211101
  Transmission Date: 20220303
  Serious: Yes (Hospitalization)
  Sender: FDA-Public Use
  Company Number: US-ELI_LILLY_AND_COMPANY-US202110009975

PATIENT
  Sex: Female

DRUGS (2)
  1. HUMALOG [Suspect]
     Active Substance: INSULIN LISPRO
     Indication: Diabetes mellitus
     Dosage: 16 U, TID
     Route: 058
  2. HUMALOG [Suspect]
     Active Substance: INSULIN LISPRO
     Indication: Product used for unknown indication
     Dosage: UNK UNK, UNKNOWN
     Route: 065

REACTIONS (8)
  - Cystitis [Unknown]
  - Hypoacusis [Unknown]
  - Mobility decreased [Unknown]
  - Dry eye [Unknown]
  - Arthritis [Unknown]
  - Gait disturbance [Unknown]
  - Injection site swelling [Unknown]
  - Wrong product administered [Unknown]
